FAERS Safety Report 19033927 (Version 1)
Quarter: 2021Q1

REPORT INFORMATION
  Report Type: Spontaneous
  Country: CA (occurrence: CA)
  Receive Date: 20210319
  Receipt Date: 20210319
  Transmission Date: 20210420
  Serious: Yes (Other)
  Sender: FDA-Public Use
  Company Number: CA-PFIZER INC-2021281225

PATIENT
  Age: 68 Year
  Sex: Female

DRUGS (1)
  1. ZOLOFT [Suspect]
     Active Substance: SERTRALINE HYDROCHLORIDE
     Dosage: 50 MG, 1X/DAY
     Route: 048

REACTIONS (3)
  - Fluid intake reduced [Recovered/Resolved]
  - Acute kidney injury [Recovered/Resolved]
  - Diarrhoea [Recovered/Resolved]
